FAERS Safety Report 23663767 (Version 1)
Quarter: 2024Q1

REPORT INFORMATION
  Report Type: Spontaneous
  Country: US (occurrence: US)
  Receive Date: 20240322
  Receipt Date: 20240322
  Transmission Date: 20240409
  Serious: Yes (Other)
  Sender: FDA-Public Use
  Company Number: US-MEDEXUS PHARMA, INC.-2024MED00141

PATIENT
  Age: 76 Year
  Sex: Female

DRUGS (25)
  1. RASUVO [Suspect]
     Active Substance: METHOTREXATE SODIUM
     Indication: Rheumatoid arthritis
     Dosage: 17.5 MG INJECTED IN ABDOMEN, 1X/WEEK
  2. UNSPECIFIED INGREDIENT [Suspect]
     Active Substance: UNSPECIFIED INGREDIENT
     Dosage: UNK
  3. FLECAINIDE [Concomitant]
     Active Substance: FLECAINIDE
  4. VERAPAMIL [Concomitant]
     Active Substance: VERAPAMIL HYDROCHLORIDE
  5. FAMOTIDINE [Concomitant]
     Active Substance: FAMOTIDINE
  6. SINGULAIR [Concomitant]
     Active Substance: MONTELUKAST SODIUM
  7. LEVOMEFOLIC ACID\METHYLCOBALAMIN\TURMERIC [Concomitant]
     Active Substance: LEVOMEFOLIC ACID\METHYLCOBALAMIN\TURMERIC
  8. AMERGE [Concomitant]
     Active Substance: NARATRIPTAN HYDROCHLORIDE
     Dosage: UNK, AS NEEDED
  9. ACETYLCYSTEINE [Concomitant]
     Active Substance: ACETYLCYSTEINE
     Dosage: UNK, AS NEEDED
  10. PROPRANOLOL [Concomitant]
     Active Substance: PROPRANOLOL HYDROCHLORIDE
     Dosage: UNK, AS NEEDED
  11. LEVALBUTEROL [Concomitant]
     Active Substance: LEVALBUTEROL
  12. CALCIUM [Concomitant]
     Active Substance: CALCIUM
  13. VITAMIN D NOS [Concomitant]
     Active Substance: VITAMIN D NOS
  14. OSTEO BI-FLEX [CHONDROITIN SULFATE;GLUCOSAMINE HYDROCHLORIDE] [Concomitant]
  15. SCHIFF MOVE FREE [Concomitant]
     Active Substance: DIETARY SUPPLEMENT
  16. MINERALS\VITAMINS [Concomitant]
     Active Substance: MINERALS\VITAMINS
  17. COENZYME Q10 [Concomitant]
     Active Substance: DIETARY SUPPLEMENT\UBIDECARENONE
  18. GLYCINE [Concomitant]
     Active Substance: GLYCINE
  19. VITAMINS NOS [Concomitant]
     Active Substance: VITAMINS
  20. ZINC [Concomitant]
     Active Substance: PYRITHIONE ZINC\ZINC\ZINC CHLORIDE
  21. VITAMIN C [Concomitant]
     Active Substance: ASCORBIC ACID
  22. PROBIOTICS NOS [Concomitant]
     Active Substance: PROBIOTICS NOS
  23. COLLAGEN [Concomitant]
     Active Substance: COLLAGEN
  24. HAIR SKIN NAILS [Concomitant]
  25. ANTIHISTAMINES NOS [Concomitant]
     Active Substance: ANTIHISTAMINES NOS

REACTIONS (8)
  - Wrist fracture [Not Recovered/Not Resolved]
  - Foot fracture [Not Recovered/Not Resolved]
  - Compression fracture [Not Recovered/Not Resolved]
  - Spinal fracture [Not Recovered/Not Resolved]
  - Multiple fractures [Not Recovered/Not Resolved]
  - Fall [Not Recovered/Not Resolved]
  - Device delivery system issue [Not Recovered/Not Resolved]
  - Device malfunction [Not Recovered/Not Resolved]

NARRATIVE: CASE EVENT DATE: 20230701
